FAERS Safety Report 6104390-3 (Version None)
Quarter: 2009Q1

REPORT INFORMATION
  Report Type: 
  Country: None (occurrence: None)
  Receive Date: 20090305
  Receipt Date: 20090224
  Transmission Date: 20090719
  Serious: Yes (Other)
  Sender: FDA-Public Use
  Company Number: SE-PFIZER INC-2009177254

PATIENT

DRUGS (2)
  1. XANOR [Suspect]
     Dosage: UNK
  2. BURONIL [Suspect]
     Dosage: UNK

REACTIONS (2)
  - APHASIA [None]
  - EXTREMITY CONTRACTURE [None]
